FAERS Safety Report 7503253-6 (Version None)
Quarter: 2011Q2

REPORT INFORMATION
  Report Type: 
  Country: None (occurrence: None)
  Receive Date: 20110525
  Receipt Date: 20101104
  Transmission Date: 20111010
  Serious: No
  Sender: FDA-Public Use
  Company Number: A0890885A

PATIENT
  Sex: Male

DRUGS (1)
  1. BACTROBAN [Suspect]
     Indication: WOUND
     Dosage: 1APP TWICE PER DAY
     Route: 061
     Dates: start: 20101001

REACTIONS (1)
  - DRUG INEFFECTIVE [None]
